FAERS Safety Report 10243557 (Version 1)
Quarter: 2014Q2

REPORT INFORMATION
  Report Type: Spontaneous
  Country: US (occurrence: US)
  Receive Date: 20140618
  Receipt Date: 20140618
  Transmission Date: 20141212
  Serious: No
  Sender: FDA-Public Use
  Company Number: US-PFIZER INC-2014164225

PATIENT
  Age: 76 Year
  Sex: Female
  Weight: 66.67 kg

DRUGS (9)
  1. PHENYTOIN [Suspect]
     Indication: CONVULSION
     Dosage: UNK (1 IN MORNING, 2 AT NIGHT 3X/WEEK AND 1 IN MORNING, 1 AT NIGHT 4X/WEEK)
  2. LYRICA [Suspect]
     Indication: NEURALGIA
     Dosage: 25 MG, DAILY
     Dates: start: 20140525
  3. LOSARTAN [Concomitant]
     Indication: HYPERTENSION
     Dosage: 100 MG, DAILY
  4. HYDROCHLOROTHIAZIDE [Concomitant]
     Indication: HYPERTENSION
     Dosage: 12.5 MG, DAILY
  5. SIMVASTATIN [Concomitant]
     Indication: BLOOD CHOLESTEROL ABNORMAL
     Dosage: 40 MG, DAILY
  6. ATELVIA [Concomitant]
     Indication: OSTEOPENIA
     Dosage: 35 MG, WEEKLY
  7. ASPIRIN [Concomitant]
     Dosage: 81 MG, AS NEEDED
  8. CALCIUM [Concomitant]
     Dosage: 1200 IU, DAILY
  9. VITAMIN C [Concomitant]
     Dosage: UNK

REACTIONS (1)
  - Vitamin D decreased [Unknown]
